FAERS Safety Report 5592620-6 (Version None)
Quarter: 2007Q4

REPORT INFORMATION
  Report Type: 
  Country: None (occurrence: None)
  Receive Date: 20071218
  Receipt Date: 20061229
  Transmission Date: 20080405
  Serious: Yes (Hospitalization, Other)
  Sender: FDA-Public Use
  Company Number: 2005075362

PATIENT
  Age: 71 Year
  Sex: Male
  Weight: 90.7 kg

DRUGS (2)
  1. BEXTRA [Suspect]
     Indication: INFLAMMATION
     Dosage: 20 MG (20 MG,1 IN 1 D)
     Dates: start: 20040101
  2. BEXTRA [Suspect]
     Indication: MYALGIA
     Dosage: 20 MG (20 MG,1 IN 1 D)
     Dates: start: 20040101

REACTIONS (1)
  - MYOCARDIAL INFARCTION [None]
